FAERS Safety Report 8160351-4 (Version None)
Quarter: 2012Q1

REPORT INFORMATION
  Report Type: 
  Country: None (occurrence: None)
  Receive Date: 20120223
  Receipt Date: 20120217
  Transmission Date: 20120608
  Serious: Yes (Other)
  Sender: FDA-Public Use
  Company Number: US-NAPPMUNDI-DEU-2012-0008585

PATIENT
  Age: 7 Month
  Sex: Male

DRUGS (6)
  1. LORAZEPAM [Suspect]
     Indication: ANAESTHESIA PROCEDURE
     Dosage: UNK
  2. MORPHINE SULFATE [Suspect]
     Indication: ANAESTHESIA PROCEDURE
     Dosage: UNK
  3. ACETAMINOPHEN [Concomitant]
  4. IBUPROFEN [Concomitant]
  5. FENTANYL [Suspect]
     Indication: ANAESTHESIA PROCEDURE
     Dosage: UNK
  6. CODEINE SULFATE [Concomitant]

REACTIONS (5)
  - CARDIAC FAILURE CONGESTIVE [None]
  - INSOMNIA [None]
  - PSYCHOMOTOR HYPERACTIVITY [None]
  - DELIRIUM [None]
  - CONDITION AGGRAVATED [None]
